FAERS Safety Report 7774375-X (Version None)
Quarter: 2011Q3

REPORT INFORMATION
  Report Type: 
  Country: None (occurrence: None)
  Receive Date: 20110923
  Receipt Date: 20110917
  Transmission Date: 20111222
  Serious: Yes (Death)
  Sender: FDA-Public Use
  Company Number: EG-SANOFI-AVENTIS-2011SA060748

PATIENT
  Age: 65 Year
  Sex: Male

DRUGS (2)
  1. ACTRAPID HUMAN [Concomitant]
     Indication: DIABETES MELLITUS
     Route: 058
  2. LANTUS [Suspect]
     Dosage: DOSE:25 UNIT(S)
     Route: 058
     Dates: start: 20110705, end: 20110815

REACTIONS (1)
  - DEATH [None]
